FAERS Safety Report 17047149 (Version 2)
Quarter: 2019Q4

REPORT INFORMATION
  Report Type: Spontaneous
  Country: US (occurrence: US)
  Receive Date: 20191119
  Receipt Date: 20191126
  Transmission Date: 20200122
  Serious: No
  Sender: FDA-Public Use
  Company Number: NVSC2019US039671

PATIENT
  Sex: Male

DRUGS (2)
  1. AFINITOR [Suspect]
     Active Substance: EVEROLIMUS
     Indication: RENAL CANCER
     Dosage: 5 MG, QD
     Route: 048
     Dates: start: 20190717, end: 20191113
  2. LENVATINIB [Suspect]
     Active Substance: LENVATINIB
     Indication: RENAL CANCER
     Dosage: 18 MG, QD
     Route: 048
     Dates: start: 20190917, end: 20191113

REACTIONS (7)
  - Dyspepsia [Unknown]
  - Malaise [Unknown]
  - Limb discomfort [Unknown]
  - Asthenia [Unknown]
  - Flatulence [Unknown]
  - Arthralgia [Unknown]
  - Diarrhoea [Unknown]
